FAERS Safety Report 8297543-X (Version None)
Quarter: 2012Q2

REPORT INFORMATION
  Report Type: 
  Country: None (occurrence: None)
  Receive Date: 20120419
  Receipt Date: 20120413
  Transmission Date: 20120825
  Serious: Yes (Death, Other)
  Sender: FDA-Public Use
  Company Number: PHHY2012ES032324

PATIENT
  Age: 54 Year
  Sex: Female

DRUGS (2)
  1. ZOMETA [Suspect]
     Dosage: 4 MG, QMO
     Route: 042
  2. ZOMETA [Suspect]
     Indication: MULTIPLE MYELOMA
     Dosage: 4 MG, EVERY 3 WEEKS
     Route: 042
     Dates: end: 20050801

REACTIONS (9)
  - PRIMARY SEQUESTRUM [None]
  - PATHOLOGICAL FRACTURE [None]
  - PAIN IN JAW [None]
  - MUCOSAL ULCERATION [None]
  - OSTEONECROSIS OF JAW [None]
  - EXPOSED BONE IN JAW [None]
  - OROANTRAL FISTULA [None]
  - DEATH [None]
  - GINGIVAL SWELLING [None]
